FAERS Safety Report 5565579-5 (Version None)
Quarter: 2007Q4

REPORT INFORMATION
  Report Type: 
  Country: None (occurrence: None)
  Receive Date: 20071218
  Receipt Date: 20060209
  Transmission Date: 20080405
  Serious: Yes (Death, Other)
  Sender: FDA-Public Use
  Company Number: GB-ROCHE-430255

PATIENT
  Age: 75 Year
  Sex: Male
  Weight: 73 kg

DRUGS (3)
  1. XELODA [Suspect]
     Route: 048
     Dates: start: 20050318, end: 20050729
  2. PYRIDOXINE [Concomitant]
     Indication: PROPHYLAXIS
     Route: 048
     Dates: start: 20050318, end: 20050729
  3. CLEXANE [Concomitant]

REACTIONS (2)
  - DEATH [None]
  - PULMONARY EMBOLISM [None]
